FAERS Safety Report 7112805-7 (Version None)
Quarter: 2010Q4

REPORT INFORMATION
  Report Type: 
  Country: None (occurrence: None)
  Receive Date: 20101119
  Receipt Date: 20101110
  Transmission Date: 20110411
  Serious: Yes (Hospitalization)
  Sender: FDA-Public Use
  Company Number: US-JNJFOC-20101105066

PATIENT
  Sex: Female
  Weight: 61.69 kg

DRUGS (8)
  1. REMICADE [Suspect]
     Indication: INFLAMMATORY BOWEL DISEASE
     Route: 042
  2. ERYTHROMYCIN [Concomitant]
  3. FLORINEF [Concomitant]
  4. AMITIZA [Concomitant]
  5. DULCOLAX [Concomitant]
  6. SENOKOT [Concomitant]
     Route: 065
  7. PREVACID [Concomitant]
  8. PHENERGAN [Concomitant]
     Dosage: PRN

REACTIONS (1)
  - GASTROINTESTINAL DISORDER [None]
